FAERS Safety Report 23760786 (Version 3)
Quarter: 2025Q2

REPORT INFORMATION
  Report Type: Spontaneous
  Country: GR (occurrence: GR)
  Receive Date: 20240419
  Receipt Date: 20250521
  Transmission Date: 20250716
  Serious: Yes (Other)
  Sender: ROCHE
  Company Number: GR-ROCHE-3546350

PATIENT
  Age: 57 Year
  Sex: Male

DRUGS (1)
  1. EMICIZUMAB [Suspect]
     Active Substance: EMICIZUMAB
     Indication: Factor VIII deficiency
     Route: 048
     Dates: start: 20230310

REACTIONS (2)
  - Arthropathy [Unknown]
  - Haematoma [Unknown]

NARRATIVE: CASE EVENT DATE: 20230518
